FAERS Safety Report 5217155-1 (Version None)
Quarter: 2007Q1

REPORT INFORMATION
  Report Type: 
  Country: None (occurrence: None)
  Receive Date: 20070122
  Receipt Date: 20070122
  Transmission Date: 20070707
  Serious: Yes (Death)
  Sender: FDA-Public Use
  Company Number: None

PATIENT
  Age: 39 Year
  Sex: Female
  Weight: 56.6996 kg

DRUGS (3)
  1. WELLBUTRIN [Suspect]
     Indication: BIPOLAR DISORDER
  2. WELLBUTRIN [Suspect]
     Indication: DEPRESSION
  3. ADVAIR DISKUS 100/50 [Suspect]
     Indication: ASTHMA

REACTIONS (7)
  - ABNORMAL BEHAVIOUR [None]
  - ALCOHOL USE [None]
  - DEPRESSION [None]
  - DRUG ABUSER [None]
  - HOMICIDE [None]
  - INTENTIONAL DRUG MISUSE [None]
  - POISONING [None]
